FAERS Safety Report 20756554 (Version 2)
Quarter: 2022Q2

REPORT INFORMATION
  Report Type: Report from Study
  Country: US (occurrence: US)
  Receive Date: 20220427
  Receipt Date: 20220622
  Transmission Date: 20220721
  Serious: Yes (Hospitalization)
  Sender: FDA-Public Use
  Company Number: US-INSMED, INC.-2022-00967-US

PATIENT
  Sex: Female

DRUGS (2)
  1. ARIKAYCE [Suspect]
     Active Substance: AMIKACIN
     Indication: Product used for unknown indication
     Dosage: 590 MILLIGRAM, QD
     Route: 055
     Dates: start: 20200731
  2. ARIKAYCE [Suspect]
     Active Substance: AMIKACIN
     Dosage: 590 MILLIGRAM, TIW
     Route: 055

REACTIONS (3)
  - Hospitalisation [Unknown]
  - Product dose omission issue [Unknown]
  - Off label use [Unknown]
